FAERS Safety Report 6151758-5 (Version None)
Quarter: 2009Q2

REPORT INFORMATION
  Report Type: 
  Country: None (occurrence: None)
  Receive Date: 20090410
  Receipt Date: 20090403
  Transmission Date: 20091009
  Serious: Yes (Hospitalization)
  Sender: FDA-Public Use
  Company Number: B0562039A

PATIENT
  Sex: Male
  Weight: 70 kg

DRUGS (7)
  1. ARIXTRA [Suspect]
     Indication: THROMBOSIS PROPHYLAXIS
     Dosage: 2.5MG PER DAY
     Route: 058
     Dates: start: 20090202, end: 20090208
  2. HYPEN [Concomitant]
     Indication: PROCEDURAL PAIN
     Route: 048
     Dates: start: 20090129
  3. DASEN [Concomitant]
     Indication: SWELLING
     Route: 048
     Dates: start: 20090129
  4. RINLAXER [Concomitant]
     Indication: PROCEDURAL PAIN
     Route: 048
     Dates: start: 20090129
  5. MARZULENE [Concomitant]
     Indication: PROPHYLAXIS
     Route: 048
     Dates: start: 20090129
  6. PANSPORIN [Concomitant]
     Indication: INFECTION PROPHYLAXIS
     Route: 065
     Dates: start: 20090129, end: 20090201
  7. FLUMARIN [Concomitant]
     Indication: INFECTION PROPHYLAXIS
     Route: 042
     Dates: start: 20090207, end: 20090213

REACTIONS (6)
  - HAEMARTHROSIS [None]
  - HAEMOGLOBIN DECREASED [None]
  - HAEMORRHAGE SUBCUTANEOUS [None]
  - JOINT SWELLING [None]
  - OEDEMA [None]
  - POST PROCEDURAL HAEMATOMA [None]
